FAERS Safety Report 14619494 (Version 2)
Quarter: 2018Q1

REPORT INFORMATION
  Report Type: Spontaneous
  Country: DE (occurrence: DE)
  Receive Date: 20180309
  Receipt Date: 20180323
  Transmission Date: 20180509
  Serious: Yes (Life-Threatening, Other)
  Sender: FDA-Public Use
  Company Number: DE-ASTRAZENECA-2018SE27856

PATIENT
  Age: 832 Month
  Sex: Female
  Weight: 46 kg

DRUGS (1)
  1. OLAPARIB. [Suspect]
     Active Substance: OLAPARIB
     Indication: OVARIAN CANCER RECURRENT
     Route: 048
     Dates: start: 20160715, end: 20180131

REACTIONS (3)
  - Breast cancer female [Unknown]
  - Myelodysplastic syndrome [Not Recovered/Not Resolved]
  - Carbohydrate antigen 125 increased [Unknown]

NARRATIVE: CASE EVENT DATE: 201710
